FAERS Safety Report 6185554-X (Version None)
Quarter: 2009Q2

REPORT INFORMATION
  Report Type: 
  Country: None (occurrence: None)
  Receive Date: 20090511
  Receipt Date: 20090427
  Transmission Date: 20091009
  Serious: Yes (Hospitalization, Other)
  Sender: FDA-Public Use
  Company Number: FR-GENENTECH-280528

PATIENT
  Sex: Female

DRUGS (4)
  1. AVASTIN [Suspect]
     Indication: COLORECTAL CANCER
     Dosage: 5 MG/KG, UNK
     Route: 042
     Dates: start: 20080310
  2. NICARDIPINE HCL [Concomitant]
     Indication: DRUG USE FOR UNKNOWN INDICATION
  3. VASTAREL [Concomitant]
     Indication: DRUG USE FOR UNKNOWN INDICATION
  4. PIASCLEDINE (FRANCE) [Concomitant]
     Indication: DRUG USE FOR UNKNOWN INDICATION

REACTIONS (5)
  - HEADACHE [None]
  - HYPERTENSION [None]
  - NEPHROTIC SYNDROME [None]
  - PROTEINURIA [None]
  - RENAL FAILURE [None]
